FAERS Safety Report 6491909-6 (Version None)
Quarter: 2009Q4

REPORT INFORMATION
  Report Type: 
  Country: None (occurrence: None)
  Receive Date: 20091125
  Receipt Date: 20090827
  Transmission Date: 20100525
  Serious: Yes (Other)
  Sender: FDA-Public Use
  Company Number: 2009BH013087

PATIENT
  Age: 53 Year
  Sex: Male

DRUGS (8)
  1. DIANEAL [Suspect]
     Indication: PERITONEAL DIALYSIS
     Dosage: 12 L ; EVERY DAY ; IP : 8 L ; EVERY DAY ; IP : 10 L ; EVERY DAY ; IP
     Route: 033
     Dates: end: 20090812
  2. DIANEAL [Suspect]
     Indication: PERITONEAL DIALYSIS
     Dosage: 12 L ; EVERY DAY ; IP : 8 L ; EVERY DAY ; IP : 10 L ; EVERY DAY ; IP
     Route: 033
     Dates: start: 20090812, end: 20090826
  3. DIANEAL [Suspect]
     Indication: PERITONEAL DIALYSIS
     Dosage: 12 L ; EVERY DAY ; IP : 8 L ; EVERY DAY ; IP : 10 L ; EVERY DAY ; IP
     Route: 033
     Dates: start: 20090826
  4. ARANESP [Concomitant]
  5. PHOSLO [Concomitant]
  6. CALCITRIOL [Concomitant]
  7. ASPIRIN [Concomitant]
  8. RENAGEL [Concomitant]

REACTIONS (3)
  - ABDOMINAL PAIN UPPER [None]
  - DISCOMFORT [None]
  - PERITONEAL CLOUDY EFFLUENT [None]
